FAERS Safety Report 24731060 (Version 2)
Quarter: 2025Q1

REPORT INFORMATION
  Report Type: Spontaneous
  Country: GB (occurrence: GB)
  Receive Date: 20241213
  Receipt Date: 20250327
  Transmission Date: 20250409
  Serious: Yes (Life-Threatening)
  Sender: RANBAXY
  Company Number: GB-SUN PHARMACEUTICAL INDUSTRIES LTD-2024RR-483331

PATIENT
  Age: 66 Year
  Sex: Male
  Weight: 64 kg

DRUGS (7)
  1. ROSUVASTATIN [Suspect]
     Active Substance: ROSUVASTATIN
     Indication: Product used for unknown indication
     Route: 065
     Dates: start: 20241024, end: 20241030
  2. AMOXICILLIN [Concomitant]
     Active Substance: AMOXICILLIN
     Indication: Lung consolidation
     Route: 065
     Dates: start: 20240828, end: 20240926
  3. PREDNISOLONE [Concomitant]
     Active Substance: PREDNISOLONE
     Indication: Adverse drug reaction
     Route: 065
     Dates: start: 20240828, end: 20240926
  4. MEBEVERINE [Concomitant]
     Active Substance: MEBEVERINE
     Indication: Abdominal pain
     Route: 065
     Dates: start: 20240903
  5. ATORVASTATIN [Concomitant]
     Active Substance: ATORVASTATIN
     Indication: Product used for unknown indication
     Route: 065
     Dates: start: 20241008, end: 20241024
  6. PREDNISOLONE [Concomitant]
     Active Substance: PREDNISOLONE
     Indication: Adverse drug reaction
     Route: 065
     Dates: start: 20241016, end: 20241114
  7. Comirnaty JN.1 COVID-19 mRNA Vaccine [Concomitant]
     Indication: Product used for unknown indication
     Route: 065
     Dates: start: 20241102, end: 20241102

REACTIONS (1)
  - Dyspnoea [Recovered/Resolved]

NARRATIVE: CASE EVENT DATE: 20241025
